FAERS Safety Report 4849405-5 (Version None)
Quarter: 2005Q4

REPORT INFORMATION
  Report Type: 
  Country: None (occurrence: None)
  Receive Date: 20051207
  Receipt Date: 20051129
  Transmission Date: 20060501
  Serious: Yes (Other)
  Sender: FDA-Public Use
  Company Number: 2005-11-1665

PATIENT
  Age: 52 Year
  Sex: Female

DRUGS (1)
  1. PEG-INTRON [Suspect]
     Dates: end: 20040101

REACTIONS (2)
  - DISEASE RECURRENCE [None]
  - PERICARDITIS [None]
